FAERS Safety Report 20947535 (Version 1)
Quarter: 2022Q2

REPORT INFORMATION
  Report Type: Spontaneous
  Country: US (occurrence: US)
  Receive Date: 20220610
  Receipt Date: 20220610
  Transmission Date: 20220721
  Serious: No
  Sender: FDA-Public Use
  Company Number: US-RIGEL PHARMACEUTICALS, INC.-2022FOS000019

PATIENT
  Age: 55 Year
  Sex: Female
  Weight: 78.458 kg

DRUGS (4)
  1. TAVALISSE [Suspect]
     Active Substance: FOSTAMATINIB
     Indication: Immune thrombocytopenia
     Dosage: 100 MG IN THE MORNING AND 150 MG IN THE EVENING
     Route: 048
  2. TAVALISSE [Suspect]
     Active Substance: FOSTAMATINIB
     Dosage: 150 MG, QHS
     Route: 048
     Dates: start: 20211117
  3. TAVALISSE [Suspect]
     Active Substance: FOSTAMATINIB
     Dosage: 150 MG, QD
     Route: 048
     Dates: start: 20211117
  4. TAVALISSE [Suspect]
     Active Substance: FOSTAMATINIB
     Dosage: 150 MG, QD
     Route: 048
     Dates: start: 20211117

REACTIONS (2)
  - Product dose omission issue [Unknown]
  - Hypertension [Unknown]

NARRATIVE: CASE EVENT DATE: 20220103
